FAERS Safety Report 6822783-3 (Version None)
Quarter: 2010Q3

REPORT INFORMATION
  Report Type: 
  Country: None (occurrence: None)
  Receive Date: 20100708
  Receipt Date: 20100629
  Transmission Date: 20110219
  Serious: Yes (Death)
  Sender: FDA-Public Use
  Company Number: CO-ROCHE-712179

PATIENT
  Sex: Male

DRUGS (3)
  1. CELLCEPT [Suspect]
     Dosage: FREQUENCY: QD.
     Route: 048
     Dates: start: 20091107, end: 20100307
  2. PREDNISOLONE [Concomitant]
     Dosage: FREQUENCY: QD
     Route: 048
  3. TACROLIMUS [Concomitant]
     Dosage: FREQUENCY: QD.
     Route: 048

REACTIONS (1)
  - CARDIOPULMONARY FAILURE [None]
